FAERS Safety Report 4394112-9 (Version None)
Quarter: 2004Q3

REPORT INFORMATION
  Report Type: 
  Country: None (occurrence: None)
  Receive Date: 20040705
  Receipt Date: 20040628
  Transmission Date: 20050211
  Serious: Yes (Other)
  Sender: FDA-Public Use
  Company Number: 200310803BCA

PATIENT
  Sex: Female

DRUGS (21)
  1. GAMIMUNE N 10% [Suspect]
     Dosage: 40 G, TOTAL DAILY, INTRAVENOUS; SEE IMAGE
     Route: 042
     Dates: start: 20030911
  2. GAMIMUNE N 10% [Suspect]
     Dosage: 40 G, TOTAL DAILY, INTRAVENOUS; SEE IMAGE
     Route: 042
     Dates: start: 20030919
  3. GAMIMUNE N 10% [Suspect]
     Dosage: 40 G, TOTAL DAILY, INTRAVENOUS; SEE IMAGE
     Route: 042
     Dates: start: 20031010
  4. GAMIMUNE N 10% [Suspect]
     Dosage: 40 G, TOTAL DAILY, INTRAVENOUS; SEE IMAGE
     Route: 042
     Dates: start: 20031030
  5. GAMIMUNE N 10% [Suspect]
     Dosage: 40 G, TOTAL DAILY, INTRAVENOUS; SEE IMAGE
     Route: 042
     Dates: start: 20031107
  6. GAMIMUNE N 10% [Suspect]
     Dosage: 40 G, TOTAL DAILY, INTRAVENOUS; SEE IMAGE
     Route: 042
     Dates: start: 20031120
  7. GAMIMUNE N [Suspect]
  8. GAMIMUNE N [Suspect]
  9. GAMIMUNE N [Suspect]
  10. GAMIMUNE N [Suspect]
  11. GAMIMUNE N [Suspect]
  12. GAMIMUNE N [Suspect]
  13. GAMIMUNE N [Suspect]
  14. GAMIMUNE N [Suspect]
  15. GAMIMUNE N [Suspect]
  16. GAMIMUNE N [Suspect]
  17. GAMIMUNE N [Suspect]
  18. GAMIMUNE N [Suspect]
  19. GAMIMUNE N [Suspect]
  20. GAMIMUNE N [Suspect]
  21. ..... [Suspect]

REACTIONS (2)
  - HTLV-1 ANTIBODY POSITIVE [None]
  - HTLV-2 ANTIBODY POSITIVE [None]
